FAERS Safety Report 25410626 (Version 3)
Quarter: 2025Q3

REPORT INFORMATION
  Report Type: Spontaneous
  Country: US (occurrence: None)
  Receive Date: 20250609
  Receipt Date: 20250801
  Transmission Date: 20251020
  Serious: No
  Sender: Alvotech
  Company Number: US-ALVOTECHPMS-2025-ALVOTECHPMS-004251

PATIENT
  Age: 16 Year
  Sex: Male

DRUGS (2)
  1. SIMLANDI [Suspect]
     Active Substance: ADALIMUMAB-RYVK
     Indication: Product used for unknown indication
     Dosage: ONCE EVERY 2 WEEKS
     Route: 065
     Dates: start: 20250516
  2. CELECOXIB [Concomitant]
     Active Substance: CELECOXIB

REACTIONS (4)
  - Device malfunction [Unknown]
  - Fear [Unknown]
  - Device failure [Unknown]
  - Crying [Unknown]
